FAERS Safety Report 10514399 (Version 1)
Quarter: 2014Q4

REPORT INFORMATION
  Report Type: Spontaneous
  Country: ES (occurrence: ES)
  Receive Date: 20141013
  Receipt Date: 20141013
  Transmission Date: 20150528
  Serious: Yes (Death, Life-Threatening, Hospitalization, Other)
  Sender: FDA-Public Use
  Company Number: ES-ABBVIE-14P-144-1293440-00

PATIENT
  Age: 60 Year
  Sex: Male
  Weight: 65 kg

DRUGS (2)
  1. METHOTREXATE [Concomitant]
     Active Substance: METHOTREXATE
     Indication: RHEUMATOID ARTHRITIS
     Dates: start: 201209
  2. HUMIRA [Suspect]
     Active Substance: ADALIMUMAB
     Indication: RHEUMATOID ARTHRITIS
     Route: 058
     Dates: start: 20140701, end: 20140904

REACTIONS (7)
  - Odynophagia [Unknown]
  - Lung infection [Fatal]
  - Dyspnoea [Fatal]
  - Lung infiltration [Fatal]
  - Peripheral ischaemia [Fatal]
  - Neutrophilia [Unknown]
  - Respiratory distress [Fatal]

NARRATIVE: CASE EVENT DATE: 2014
